FAERS Safety Report 8222011-0 (Version None)
Quarter: 2012Q1

REPORT INFORMATION
  Report Type: 
  Country: None (occurrence: None)
  Receive Date: 20120320
  Receipt Date: 20120308
  Transmission Date: 20120608
  Serious: Yes (Hospitalization)
  Sender: FDA-Public Use
  Company Number: TR-US-EMD SERONO, INC.-7117730

PATIENT
  Sex: Female
  Weight: 73 kg

DRUGS (5)
  1. DESLORATADINE [Suspect]
     Indication: HYPERSENSITIVITY
     Route: 048
     Dates: start: 19950101
  2. REBIF [Suspect]
     Indication: MULTIPLE SCLEROSIS
     Route: 058
     Dates: start: 20091201, end: 20120227
  3. LERCADIP [Suspect]
     Indication: TENSION
     Route: 048
     Dates: start: 20120101
  4. OLMESARTAN MEDOXOMIL AND HYDROCHLOROTHIZIDE [Suspect]
     Indication: TENSION
     Dosage: 20 MG/25 MG
     Route: 048
     Dates: start: 20100101
  5. CARVEDILOL [Suspect]
     Indication: TENSION
     Route: 048
     Dates: start: 20120101

REACTIONS (3)
  - GAIT DISTURBANCE [None]
  - CENTRAL NERVOUS SYSTEM LESION [None]
  - FATIGUE [None]
